FAERS Safety Report 6640136-8 (Version None)
Quarter: 2010Q1

REPORT INFORMATION
  Report Type: 
  Country: None (occurrence: None)
  Receive Date: 20100318
  Receipt Date: 20100308
  Transmission Date: 20100710
  Serious: Yes (Other)
  Sender: FDA-Public Use
  Company Number: JP-ROCHE-686532

PATIENT
  Sex: Female

DRUGS (13)
  1. TOCILIZUMAB [Suspect]
     Indication: RHEUMATOID ARTHRITIS
     Route: 041
     Dates: start: 20081006, end: 20081006
  2. TOCILIZUMAB [Suspect]
     Route: 041
     Dates: start: 20081110, end: 20081110
  3. TOCILIZUMAB [Suspect]
     Route: 041
     Dates: start: 20081215, end: 20081215
  4. TOCILIZUMAB [Suspect]
     Route: 041
     Dates: start: 20090119, end: 20090119
  5. TOCILIZUMAB [Suspect]
     Route: 041
     Dates: start: 20090216, end: 20090216
  6. TOCILIZUMAB [Suspect]
     Route: 041
     Dates: start: 20090316, end: 20090316
  7. TOCILIZUMAB [Suspect]
     Route: 041
     Dates: start: 20090413, end: 20090413
  8. TOCILIZUMAB [Suspect]
     Route: 041
     Dates: start: 20090511
  9. ISCOTIN [Concomitant]
     Dosage: FORM: PERORAL AGENT
     Route: 048
     Dates: start: 20081003
  10. PYDOXAL [Concomitant]
     Route: 048
     Dates: start: 20081001
  11. NORVASC [Concomitant]
     Route: 048
     Dates: end: 20091206
  12. CONIEL [Concomitant]
     Route: 048
     Dates: start: 20091207
  13. EPOGIN S [Concomitant]
     Route: 058
     Dates: start: 20080807

REACTIONS (2)
  - CONJUNCTIVAL HAEMORRHAGE [None]
  - RENAL IMPAIRMENT [None]
